FAERS Safety Report 4362439-2 (Version None)
Quarter: 2004Q2

REPORT INFORMATION
  Report Type: 
  Country: None (occurrence: None)
  Receive Date: 20040518
  Receipt Date: 20040504
  Transmission Date: 20050107
  Serious: Yes (Hospitalization, Other)
  Sender: FDA-Public Use
  Company Number: WAES 0405USA00128

PATIENT
  Age: 79 Year
  Sex: Female
  Weight: 49.8957 kg

DRUGS (19)
  1. VIOXX [Suspect]
     Dosage: 25 MG/DAILY/PO
     Route: 048
  2. TRACLEER [Suspect]
     Indication: PULMONARY HYPERTENSION
     Dosage: 62.5/BID/PO
     Route: 048
     Dates: start: 20031001, end: 20031124
  3. TAB TRACLEER [Suspect]
     Indication: PULMONARY HYPERTENSION
     Dosage: 125 MG/BID/PO; PO
     Route: 048
     Dates: start: 20031125, end: 20030101
  4. TAB TRACLEER [Suspect]
     Indication: PULMONARY HYPERTENSION
     Dosage: 125 MG/BID/PO; PO
     Route: 048
     Dates: start: 20040101, end: 20040425
  5. CARDIZEM [Concomitant]
  6. COUMADIN [Concomitant]
  7. DIOVAN [Concomitant]
  8. FOSAMAX [Concomitant]
  9. LASIX [Concomitant]
  10. LOPRESSOR [Concomitant]
  11. NORVASC [Concomitant]
  12. PREMARIN [Concomitant]
  13. REGLAN [Concomitant]
  14. SYNTHROID [Concomitant]
  15. ZANTAC [Concomitant]
  16. ASPIRIN [Concomitant]
  17. DIGOXIN [Concomitant]
  18. NITROGLYCERIN [Concomitant]
  19. PREDNISONE [Concomitant]

REACTIONS (7)
  - CHOLANGITIS [None]
  - CHOLELITHIASIS [None]
  - DIARRHOEA [None]
  - GASTRIC ULCER [None]
  - GASTROINTESTINAL DISORDER [None]
  - NASOPHARYNGITIS [None]
  - PHARYNGOLARYNGEAL PAIN [None]
